FAERS Safety Report 8612355-2 (Version None)
Quarter: 2012Q3

REPORT INFORMATION
  Report Type: 
  Country: None (occurrence: None)
  Receive Date: 20120822
  Receipt Date: 20120716
  Transmission Date: 20120928
  Serious: Yes (Other)
  Sender: FDA-Public Use
  Company Number: US-MYLANLABS-2012S1014731

PATIENT
  Sex: Female

DRUGS (1)
  1. CLINDAMYCIN [Suspect]

REACTIONS (1)
  - ANAPHYLACTIC REACTION [None]
